FAERS Safety Report 19161316 (Version 1)
Quarter: 2021Q2

REPORT INFORMATION
  Report Type: Spontaneous
  Country: IT (occurrence: IT)
  Receive Date: 20210421
  Receipt Date: 20210421
  Transmission Date: 20210717
  Serious: Yes (Other)
  Sender: FDA-Public Use
  Company Number: IT-EUSA PHARMA (UK) LIMITED-2021IT000072

PATIENT
  Age: 49 Year
  Sex: Male

DRUGS (12)
  1. CYCLOSPORINE. [Concomitant]
     Active Substance: CYCLOSPORINE
     Indication: CASTLEMAN^S DISEASE
     Dosage: (CSA, TARGET 100 TO 200 MCG/L) ASSOCIATED TO TOCILIZUMAB FOR SIX MONTHS
     Route: 065
  2. SYLVANT [Suspect]
     Active Substance: SILTUXIMAB
     Indication: CASTLEMAN^S DISEASE
     Dosage: 11 MG/KG, EVERY 3 WEEKS, CYCLE 1
     Route: 042
  3. TOCILIZUMAB. [Concomitant]
     Active Substance: TOCILIZUMAB
     Indication: CASTLEMAN^S DISEASE
     Dosage: 8 MG/KG
     Route: 065
  4. ANAKINRA [Concomitant]
     Active Substance: ANAKINRA
     Indication: CASTLEMAN^S DISEASE
     Dosage: 100 MG/DIE
     Route: 065
  5. PREDNISONE. [Concomitant]
     Active Substance: PREDNISONE
     Indication: CASTLEMAN^S DISEASE
     Dosage: UNK
     Route: 065
  6. SIROLIMUS. [Concomitant]
     Active Substance: SIROLIMUS
     Indication: CASTLEMAN^S DISEASE
     Dosage: (TARGET 12 TO 20 NG/ML)
     Route: 065
  7. INTERLEUKIN?1 [Concomitant]
     Indication: CASTLEMAN^S DISEASE
     Dosage: UNK
     Route: 065
  8. SYLVANT [Suspect]
     Active Substance: SILTUXIMAB
     Dosage: 11 MG/KG, EVERY 3 WEEKS, CYCLE 2
     Route: 042
  9. CYCLOPHOSPHAMIDE. [Concomitant]
     Active Substance: CYCLOPHOSPHAMIDE
     Indication: CASTLEMAN^S DISEASE
     Route: 065
  10. IMMUNOGLOBULINS NOS [Concomitant]
     Active Substance: IMMUNE GLOBULIN NOS
     Indication: CASTLEMAN^S DISEASE
     Dosage: 25 G/DIE INFUSION
     Route: 042
  11. THALIDOMIDE [Concomitant]
     Active Substance: THALIDOMIDE
     Indication: CASTLEMAN^S DISEASE
     Dosage: UNK
     Route: 065
  12. SYLVANT [Suspect]
     Active Substance: SILTUXIMAB
     Dosage: 11 MG/KG, EVERY 3 WEEKS, CYCLE 3
     Route: 042

REACTIONS (1)
  - Drug ineffective [Unknown]
